FAERS Safety Report 8801124 (Version 2)
Quarter: 2012Q4

REPORT INFORMATION
  Report Type: 
  Country: JP (occurrence: JP)
  Receive Date: 20120921
  Receipt Date: 20121023
  Transmission Date: 20130627
  Serious: Yes (Other)
  Sender: FDA-Public Use
  Company Number: JP-GLAXOSMITHKLINE-B0831154A

PATIENT

DRUGS (1)
  1. PAXIL [Suspect]
     Indication: DEPRESSION
     Dosage: 10MG Per day
     Route: 048

REACTIONS (3)
  - Suicidal ideation [Recovered/Resolved]
  - Night sweats [Recovered/Resolved]
  - Nightmare [Recovered/Resolved]
